FAERS Safety Report 19040806 (Version 2)
Quarter: 2023Q1

REPORT INFORMATION
  Report Type: Spontaneous
  Country: CA (occurrence: CA)
  Receive Date: 20210322
  Receipt Date: 20230307
  Transmission Date: 20230418
  Serious: Yes (Hospitalization, Other)
  Sender: FDA-Public Use
  Company Number: CA-BRISTOL-MYERS SQUIBB COMPANY-BMS-2021-023855

PATIENT
  Age: 44 Year
  Sex: Male

DRUGS (21)
  1. SUSTIVA [Interacting]
     Active Substance: EFAVIRENZ
     Indication: Product used for unknown indication
     Dosage: 400 MILLIGRAM, BID
     Route: 048
  2. ATAZANAVIR SULFATE [Interacting]
     Active Substance: ATAZANAVIR SULFATE
     Indication: HIV infection
     Dosage: UNK
  3. LAMIVUDINE [Interacting]
     Active Substance: LAMIVUDINE
     Indication: HIV infection
  4. QUETIAPINE FUMARATE [Interacting]
     Active Substance: QUETIAPINE FUMARATE
     Indication: Bipolar disorder
     Dosage: UNK
     Route: 048
  5. QUETIAPINE FUMARATE [Interacting]
     Active Substance: QUETIAPINE FUMARATE
     Indication: Depression
  6. SERTRALINE HYDROCHLORIDE [Interacting]
     Active Substance: SERTRALINE HYDROCHLORIDE
     Indication: Bipolar disorder
     Dosage: UNK
  7. VALPROIC ACID [Interacting]
     Active Substance: VALPROIC ACID
     Indication: Bipolar disorder
     Dosage: UNK
  8. KALETRA [Interacting]
     Active Substance: LOPINAVIR\RITONAVIR
     Indication: HIV infection
     Dosage: UNK
  9. CLONAZEPAM [Interacting]
     Active Substance: CLONAZEPAM
     Indication: Bipolar disorder
  10. CLONAZEPAM [Interacting]
     Active Substance: CLONAZEPAM
     Indication: Psychotic disorder
  11. CLONAZEPAM [Interacting]
     Active Substance: CLONAZEPAM
     Indication: Depression
  12. ZOPICLONE [Interacting]
     Active Substance: ZOPICLONE
     Indication: Bipolar disorder
     Dosage: UNK
  13. BUPROPION [Interacting]
     Active Substance: BUPROPION
     Indication: Bipolar disorder
     Dosage: UNK
  14. BUPROPION [Interacting]
     Active Substance: BUPROPION
     Indication: Depression
  15. RALTEGRAVIR POTASSIUM [Concomitant]
     Active Substance: RALTEGRAVIR POTASSIUM
     Indication: HIV infection
  16. RISPERIDONE [Concomitant]
     Active Substance: RISPERIDONE
     Indication: Depression
  17. CITALOPRAM HYDROBROMIDE [Concomitant]
     Active Substance: CITALOPRAM HYDROBROMIDE
     Indication: Depression
  18. ENFUVIRTIDE [Concomitant]
     Active Substance: ENFUVIRTIDE
     Indication: HIV infection
     Dosage: UNK
  19. EMTRIVA [Concomitant]
     Active Substance: EMTRICITABINE
     Indication: HIV infection
  20. TENOFOVIR [Concomitant]
     Active Substance: TENOFOVIR
     Indication: HIV infection
  21. ATAZANAVIR SULFATE\RITONAVIR [Concomitant]
     Active Substance: ATAZANAVIR SULFATE\RITONAVIR
     Indication: HIV infection

REACTIONS (5)
  - Drug interaction [Recovered/Resolved]
  - Depression [Recovered/Resolved]
  - Off label use [Unknown]
  - Psychiatric decompensation [Recovered/Resolved]
  - Hospitalisation [Recovered/Resolved]
